FAERS Safety Report 21335411 (Version 4)
Quarter: 2023Q1

REPORT INFORMATION
  Report Type: Spontaneous
  Country: GB (occurrence: GB)
  Receive Date: 20220915
  Receipt Date: 20230306
  Transmission Date: 20230417
  Serious: Yes (Other)
  Sender: FDA-Public Use
  Company Number: GB-MHRA-ADR 27257669

PATIENT
  Sex: Male

DRUGS (13)
  1. ALLOPURINOL [Suspect]
     Active Substance: ALLOPURINOL
     Indication: Product used for unknown indication
     Dosage: 300 MILLIGRAM, ONCE A DAY (1 A DAY OVER 10 YEARS.0
     Route: 065
  2. AMLODIPINE [Suspect]
     Active Substance: AMLODIPINE BESYLATE
     Indication: Product used for unknown indication
     Dosage: 10 MILLIGRAM, ONCE A DAY 91 A DAY OVER 10 YEARS.0
     Route: 065
  3. ATENOLOL [Suspect]
     Active Substance: ATENOLOL
     Indication: Product used for unknown indication
     Dosage: 100 MILLIGRAM, ONCE A DAY ()1 A DAY OVER 10 YEARS.)
     Route: 065
  4. ATORVASTATIN [Suspect]
     Active Substance: ATORVASTATIN
     Indication: Product used for unknown indication
     Dosage: 20 MILLIGRAM, ONCE A DAY (1 A DAY OVER 10 YEARS.)
     Route: 065
  5. GABAPENTIN [Suspect]
     Active Substance: GABAPENTIN
     Indication: Product used for unknown indication
     Dosage: 300 MILLIGRAM (4 - 3 TIMES A DAY = 3,600MG, OVER 10 YEARS.)
     Route: 065
  6. ISOSORBIDE MONONITRATE [Suspect]
     Active Substance: ISOSORBIDE MONONITRATE
     Indication: Product used for unknown indication
     Dosage: 40 MILLIGRAM, TWO TIMES A DAY (80 MG, OVER 10 YEARS.)
     Route: 065
  7. LISINOPRIL [Suspect]
     Active Substance: LISINOPRIL
     Indication: Product used for unknown indication
     Dosage: 20 MILLIGRAM, ONCE A DAY (1 A DAY OVER 10 YEARS)
     Route: 065
  8. SERTRALINE [Suspect]
     Active Substance: SERTRALINE HYDROCHLORIDE
     Indication: Product used for unknown indication
     Dosage: 100 MILLIGRAM, TWO TIMES A DAY (*200MG, OVER 10 YEARS.)
     Route: 065
  9. TRAMADOL [Suspect]
     Active Substance: TRAMADOL
     Indication: Product used for unknown indication
     Dosage: 50 MILLIGRAM (1 - 4 TIMES A DAY = 200MG, OVER 10 YEARS.)
     Route: 065
     Dates: end: 20191111
  10. ASPIRIN [Suspect]
     Active Substance: ASPIRIN
     Indication: Product used for unknown indication
     Dosage: 75 MILLIGRAM, ONCE A DAY (1 A DAY OVER 10 YEARS. TOTAL PER DAY 4,625 MG A DAY/10 YEAR.)
     Route: 065
  11. BACLOFEN [Suspect]
     Active Substance: BACLOFEN
     Indication: Product used for unknown indication
     Dosage: 10 MILLIGRAM (1 - 4 TIMES A DAY = 40MG, OVER 10 YEARS.0
     Route: 065
  12. BACLOFEN [Suspect]
     Active Substance: BACLOFEN
     Dosage: 10 MILLIGRAM, FOUR TIMES/DAY (OVER 10 YEARS.)
     Route: 065
     Dates: end: 20191111
  13. CLONAZEPAM [Suspect]
     Active Substance: CLONAZEPAM
     Indication: Product used for unknown indication
     Dosage: 0.5 MILLIGRAM, FOUR TIMES/DAY((OVER 10 YEARS)
     Route: 065
     Dates: end: 20191111

REACTIONS (10)
  - Drug interaction [Unknown]
  - Agitation postoperative [Unknown]
  - Confusion postoperative [Unknown]
  - Insomnia [Unknown]
  - Abnormal dreams [Recovered/Resolved]
  - Visual impairment [Unknown]
  - Headache [Unknown]
  - Coordination abnormal [Recovered/Resolved]
  - Muscle spasms [Unknown]
  - Depressed mood [Unknown]
